FAERS Safety Report 10273694 (Version 1)
Quarter: 2014Q2

REPORT INFORMATION
  Report Type: Spontaneous
  Country: US (occurrence: None)
  Receive Date: 20140630
  Receipt Date: 20140630
  Transmission Date: 20141212
  Serious: Yes (Hospitalization)
  Sender: FDA-Public Use
  Company Number: None

PATIENT
  Age: 31 Year
  Sex: Male
  Weight: 96.5 kg

DRUGS (2)
  1. PREGABALIN [Suspect]
     Indication: CONVULSION
     Route: 048
     Dates: start: 20140328, end: 20140517
  2. CLOBAZAM [Suspect]
     Indication: CONVULSION
     Route: 048
     Dates: start: 20140407, end: 20140517

REACTIONS (5)
  - Sedation [None]
  - Toxicity to various agents [None]
  - Somnolence [None]
  - Nystagmus [None]
  - Gait disturbance [None]
